FAERS Safety Report 19711058 (Version 1)
Quarter: 2021Q3

REPORT INFORMATION
  Report Type: Report from Study
  Country: US (occurrence: US)
  Receive Date: 20210817
  Receipt Date: 20210817
  Transmission Date: 20211014
  Serious: Yes (Hospitalization)
  Sender: FDA-Public Use
  Company Number: US-EXELIXIS-CABO-21043095

PATIENT
  Age: 67 Year
  Sex: Male

DRUGS (1)
  1. CABOMETYX [Suspect]
     Active Substance: CABOZANTINIB S-MALATE
     Indication: PRODUCT USED FOR UNKNOWN INDICATION
     Dosage: 40 MG, QD
     Route: 048
     Dates: start: 202108

REACTIONS (5)
  - Dyspnoea [Unknown]
  - Vomiting [Unknown]
  - COVID-19 [Unknown]
  - Muscle spasms [Unknown]
  - Diarrhoea [Unknown]

NARRATIVE: CASE EVENT DATE: 202108
